FAERS Safety Report 13639788 (Version 1)
Quarter: 2017Q2

REPORT INFORMATION
  Report Type: Spontaneous
  Country: US (occurrence: US)
  Receive Date: 20170609
  Receipt Date: 20170609
  Transmission Date: 20170830
  Serious: No
  Sender: FDA-Public Use
  Company Number: US-ROCHE-1470289

PATIENT
  Sex: Male

DRUGS (6)
  1. KEPPRA [Concomitant]
     Active Substance: LEVETIRACETAM
  2. KLONOPIN [Suspect]
     Active Substance: CLONAZEPAM
     Indication: PRODUCT USED FOR UNKNOWN INDICATION
     Route: 065
  3. ZONEGRAN [Concomitant]
     Active Substance: ZONISAMIDE
  4. CLOBAZAM [Concomitant]
     Active Substance: CLOBAZAM
  5. DEPAKOTE [Concomitant]
     Active Substance: DIVALPROEX SODIUM
  6. LAMICTAL [Concomitant]
     Active Substance: LAMOTRIGINE

REACTIONS (6)
  - Eating disorder [Unknown]
  - Lethargy [Unknown]
  - Weight increased [Unknown]
  - Hypotonia [Unknown]
  - Seizure [Unknown]
  - Generalised tonic-clonic seizure [Unknown]
